FAERS Safety Report 5917304-3 (Version None)
Quarter: 2008Q4

REPORT INFORMATION
  Report Type: 
  Country: None (occurrence: None)
  Receive Date: 20081014
  Receipt Date: 20081003
  Transmission Date: 20090506
  Serious: Yes (Other)
  Sender: FDA-Public Use
  Company Number: GB-ROCHE-589748

PATIENT
  Sex: Female
  Weight: 118.8 kg

DRUGS (6)
  1. ORLISTAT [Suspect]
     Indication: OBESITY
     Route: 048
     Dates: start: 20080904
  2. EPILIM [Concomitant]
     Indication: EPILEPSY
     Dosage: REPORTED AS EPILIM CHRONO
     Route: 048
  3. OXYBUTYNIN [Concomitant]
     Indication: INCONTINENCE
     Route: 048
  4. LEVOTHYROXINE SODIUM [Concomitant]
     Indication: HYPOTHYROIDISM
     Route: 048
  5. BENDROFLUMETHIAZIDE [Concomitant]
     Indication: BLOOD PRESSURE
     Dosage: REPORTED AS BENDROFLUMETHIAZED
     Route: 048
  6. QUININE [Concomitant]
     Route: 048

REACTIONS (1)
  - EPILEPSY [None]
